FAERS Safety Report 6828845-9 (Version None)
Quarter: 2010Q3

REPORT INFORMATION
  Report Type: 
  Country: None (occurrence: None)
  Receive Date: 20100709
  Receipt Date: 20070221
  Transmission Date: 20110219
  Serious: No
  Sender: FDA-Public Use
  Company Number: US-PFIZER INC-2007014375

PATIENT
  Sex: Female
  Weight: 45.36 kg

DRUGS (13)
  1. CHANTIX [Suspect]
     Indication: SMOKING CESSATION THERAPY
     Route: 048
     Dates: start: 20070212
  2. CARAFATE [Concomitant]
  3. ZELNORM [Concomitant]
  4. SYNTHROID [Concomitant]
  5. ALLEGRA [Concomitant]
  6. MONTELUKAST SODIUM [Concomitant]
  7. REMERON [Concomitant]
  8. XANAX [Concomitant]
  9. MS CONTIN [Concomitant]
  10. PREDNISONE [Concomitant]
  11. FLONASE [Concomitant]
  12. PROTONIX [Concomitant]
  13. ALL OTHER THERAPEUTIC PRODUCTS [Concomitant]

REACTIONS (2)
  - DECREASED APPETITE [None]
  - NAUSEA [None]
